FAERS Safety Report 8423865-5 (Version None)
Quarter: 2012Q2

REPORT INFORMATION
  Report Type: 
  Country: None (occurrence: None)
  Receive Date: 20120608
  Receipt Date: 20110330
  Transmission Date: 20120825
  Serious: No
  Sender: FDA-Public Use
  Company Number: US-ASTRAZENECA-2008UW28975

PATIENT
  Age: 78 Year
  Sex: Female

DRUGS (10)
  1. ATACAND [Suspect]
     Dosage: UNKNOWN
     Route: 048
     Dates: start: 20060101, end: 20080901
  2. LEVOTHYROXINE SODIUM [Concomitant]
  3. MAXALT [Concomitant]
  4. TOPAMAX [Concomitant]
  5. ASPIRIN [Concomitant]
  6. PERCOCET [Concomitant]
  7. ATACAND [Suspect]
     Route: 048
     Dates: start: 20080901
  8. PRILOSEC [Concomitant]
     Route: 048
  9. ANTIVERT [Concomitant]
  10. LIPITOR [Concomitant]

REACTIONS (2)
  - MIGRAINE [None]
  - HEADACHE [None]
